FAERS Safety Report 6297541-1 (Version None)
Quarter: 2009Q3

REPORT INFORMATION
  Report Type: 
  Country: None (occurrence: None)
  Receive Date: 20090805
  Receipt Date: 20090728
  Transmission Date: 20100115
  Serious: Yes (Other)
  Sender: FDA-Public Use
  Company Number: ES-ASTRAZENECA-2009SE06281

PATIENT
  Age: 72 Year
  Sex: Female
  Weight: 165 kg

DRUGS (5)
  1. SEROQUEL XR [Suspect]
     Indication: DELIRIUM
     Route: 048
     Dates: start: 20090604, end: 20090606
  2. CHLORDIAZEPOXIDE [Concomitant]
     Indication: ANXIETY
     Route: 048
     Dates: start: 20080325
  3. LORAZEPAN [Concomitant]
     Indication: ANXIETY
     Route: 048
     Dates: start: 20080115
  4. ARTANE [Concomitant]
     Indication: PARKINSON'S DISEASE
     Route: 048
     Dates: start: 19930228
  5. FLUFENAZINA [Concomitant]
     Indication: DELIRIUM
     Route: 048
     Dates: start: 19930228

REACTIONS (1)
  - LOSS OF CONSCIOUSNESS [None]
